FAERS Safety Report 21530040 (Version 1)
Quarter: 2022Q4

REPORT INFORMATION
  Report Type: Report from Study
  Country: US (occurrence: US)
  Receive Date: 20221031
  Receipt Date: 20221031
  Transmission Date: 20230113
  Serious: No
  Sender: FDA-Public Use
  Company Number: US-ABBVIE-4147372

PATIENT
  Age: 60 Year
  Sex: Female

DRUGS (4)
  1. HUMIRA [Suspect]
     Active Substance: ADALIMUMAB
     Indication: Crohn^s disease
     Route: 058
  2. Moderna [Concomitant]
     Indication: COVID-19 immunisation
     Route: 030
     Dates: start: 20210202, end: 20210202
  3. Moderna [Concomitant]
     Indication: COVID-19 immunisation
     Dates: start: 20210305, end: 20210305
  4. Moderna [Concomitant]
     Indication: COVID-19 immunisation
     Dates: start: 20210925, end: 20210925

REACTIONS (2)
  - Chronic sinusitis [Not Recovered/Not Resolved]
  - COVID-19 [Recovered/Resolved]

NARRATIVE: CASE EVENT DATE: 20220601
